FAERS Safety Report 7992449-5 (Version None)
Quarter: 2011Q4

REPORT INFORMATION
  Report Type: 
  Country: None (occurrence: None)
  Receive Date: 20111219
  Receipt Date: 20111213
  Transmission Date: 20120403
  Serious: Yes (Death)
  Sender: FDA-Public Use
  Company Number: PHEH2011US011713

PATIENT
  Sex: Female

DRUGS (6)
  1. TASIGNA [Suspect]
     Dosage: 400 MG, BID
     Route: 048
     Dates: start: 20111001, end: 20111101
  2. IRON [Concomitant]
     Dosage: UNK UKN, UNK
  3. M.V.I. [Concomitant]
     Dosage: UNK UKN, UNK
  4. FOLIC ACID [Concomitant]
     Dosage: UNK UKN, UNK
  5. CALCIUM D3 [Concomitant]
     Dosage: UNK UKN, UNK
  6. OXYCODONE HCL [Concomitant]
     Dosage: UNK UKN, UNK

REACTIONS (1)
  - DEATH [None]
